FAERS Safety Report 6877321-6 (Version None)
Quarter: 2010Q3

REPORT INFORMATION
  Report Type: 
  Country: None (occurrence: None)
  Receive Date: 20100727
  Receipt Date: 20090910
  Transmission Date: 20110219
  Serious: No
  Sender: FDA-Public Use
  Company Number: US-ABBOTT-09P-163-0597170-00

PATIENT
  Weight: 123.94 kg

DRUGS (11)
  1. SYNTHROID [Suspect]
     Indication: HYPOTHYROIDISM
     Route: 048
  2. ASPIRIN [Concomitant]
     Indication: PRODUCT USED FOR UNKNOWN INDICATION
  3. KEFLEX [Concomitant]
     Indication: STAPHYLOCOCCAL INFECTION
     Dosage: UNKNOWN
  4. ACCUPRIL [Concomitant]
     Indication: HYPERTENSION
  5. PROTONIX [Concomitant]
     Indication: GASTROOESOPHAGEAL REFLUX DISEASE
  6. HYDROCHLOROTHIAZIDE [Concomitant]
     Indication: HYPERTENSION
     Dosage: UNKNOWN
  7. MAGNESIUM [Concomitant]
     Indication: MINERAL SUPPLEMENTATION
     Dosage: UNKNOWN
  8. MULTI-VITAMIN [Concomitant]
     Indication: VITAMIN SUPPLEMENTATION
     Dosage: UNKNOWN
  9. CALCIUM [Concomitant]
     Indication: MINERAL SUPPLEMENTATION
     Dosage: UNKNOWN
  10. NAPROXEN [Concomitant]
     Indication: PAIN
     Dosage: UNKNOWN
  11. HYDROCODONE BITARTRATE [Concomitant]
     Indication: PAIN
     Dosage: UNKNOWN

REACTIONS (2)
  - MUSCLE SPASMS [None]
  - MYALGIA [None]
